FAERS Safety Report 5480518-3 (Version None)
Quarter: 2007Q4

REPORT INFORMATION
  Report Type: 
  Country: None (occurrence: None)
  Receive Date: 20071009
  Receipt Date: 20071001
  Transmission Date: 20080405
  Serious: Yes (Hospitalization)
  Sender: FDA-Public Use
  Company Number: CH-ASTRAZENECA-2007PK02034

PATIENT
  Age: 63 Year
  Sex: Male

DRUGS (14)
  1. SEROQUEL [Suspect]
     Dosage: 50-200 MG
     Route: 048
     Dates: start: 20070125, end: 20070222
  2. SEROQUEL [Interacting]
     Route: 048
     Dates: start: 20070223, end: 20070307
  3. SEROQUEL [Interacting]
     Route: 048
     Dates: start: 20070308, end: 20070602
  4. SEROQUEL [Interacting]
     Route: 048
     Dates: start: 20070608
  5. CORDARONE [Interacting]
     Route: 048
     Dates: start: 20070120
  6. PLAVIX [Concomitant]
     Route: 048
     Dates: start: 20070120
  7. ASPIRIN [Concomitant]
     Route: 048
     Dates: start: 20070120
  8. SORTIS [Concomitant]
     Route: 048
     Dates: start: 20070120
  9. LAMICTAL [Concomitant]
     Route: 048
     Dates: start: 20070120
  10. METO ZEROK [Concomitant]
     Route: 048
     Dates: start: 20070120, end: 20070606
  11. METO ZEROK [Concomitant]
     Route: 048
     Dates: start: 20070607
  12. PAROXETIN [Concomitant]
     Dosage: 10-20 MG
     Route: 048
     Dates: start: 20070122, end: 20070219
  13. PAROXETIN [Concomitant]
     Dosage: 10-20 MG
     Route: 048
     Dates: start: 20070220, end: 20070423
  14. ZOLPIDEM TARTRATE [Concomitant]
     Route: 048
     Dates: start: 20070202

REACTIONS (2)
  - DRUG INTERACTION [None]
  - POISONING [None]
